FAERS Safety Report 18890099 (Version 1)
Quarter: 2021Q1

REPORT INFORMATION
  Report Type: Spontaneous
  Country: US (occurrence: US)
  Receive Date: 20210214
  Receipt Date: 20210214
  Transmission Date: 20210420
  Serious: No
  Sender: FDA-Public Use
  Company Number: US-ASTRAZENECA-2021A048739

PATIENT
  Sex: Male

DRUGS (2)
  1. BYDUREON [Suspect]
     Active Substance: EXENATIDE
     Route: 058
     Dates: start: 20210208
  2. INSULIN [Concomitant]
     Active Substance: INSULIN NOS
     Dosage: REDUCED FROM 30 UNITS TO 25 UNITS
     Route: 058

REACTIONS (2)
  - Injection site pain [Unknown]
  - Wrong technique in device usage process [Unknown]
